FAERS Safety Report 13706451 (Version 1)
Quarter: 2017Q2

REPORT INFORMATION
  Report Type: Spontaneous
  Country: JP (occurrence: JP)
  Receive Date: 20170630
  Receipt Date: 20170630
  Transmission Date: 20170830
  Serious: Yes (Other)
  Sender: FDA-Public Use
  Company Number: JP-APOTEX-2017AP013751

PATIENT
  Age: 36 Year
  Sex: Male

DRUGS (3)
  1. PAXIL CR [Suspect]
     Active Substance: PAROXETINE HYDROCHLORIDE
     Dosage: 37.5 MG, QOD
     Route: 048
  2. PAXIL CR [Suspect]
     Active Substance: PAROXETINE HYDROCHLORIDE
     Indication: OBSESSIVE-COMPULSIVE DISORDER
     Dosage: 37.5 MG, 1D
     Route: 048
  3. PAXIL CR [Suspect]
     Active Substance: PAROXETINE HYDROCHLORIDE
     Dosage: 25 MG, QOD
     Route: 048

REACTIONS (4)
  - Product use in unapproved indication [Unknown]
  - Loss of consciousness [Recovered/Resolved]
  - Limb injury [Unknown]
  - Post-traumatic pain [Unknown]

NARRATIVE: CASE EVENT DATE: 201706
